FAERS Safety Report 4700069-0 (Version None)
Quarter: 2005Q2

REPORT INFORMATION
  Report Type: 
  Country: None (occurrence: None)
  Receive Date: 20050627
  Receipt Date: 20050621
  Transmission Date: 20051028
  Serious: Yes (Other)
  Sender: FDA-Public Use
  Company Number: 407766

PATIENT
  Age: 62 Year
  Sex: Female

DRUGS (3)
  1. CARVEDILOL [Suspect]
     Indication: HYPERTENSION
     Route: 048
     Dates: start: 20050418, end: 20050502
  2. PHYSIOTENS [Concomitant]
  3. ATARAX [Concomitant]

REACTIONS (2)
  - LICHEN PLANUS [None]
  - SKIN DISORDER [None]
